FAERS Safety Report 9238835 (Version 1)
Quarter: 2013Q1

REPORT INFORMATION
  Report Type: Spontaneous
  Country: US (occurrence: None)
  Receive Date: 20121107
  Receipt Date: 20121107
  Transmission Date: 20140127
  Serious: No
  Sender: FDA-Public Use
  Company Number: 2012HGS-003831

PATIENT
  Age: 33 Year
  Sex: Female
  Weight: 67.13 kg

DRUGS (5)
  1. BENLYSTA [Suspect]
     Dosage: 1 IN 14 D
     Route: 041
     Dates: start: 20120424
  2. PREDNISONE [Concomitant]
  3. CELLCEPT [Concomitant]
  4. PLAQUENIL (HYDROXYCHLOROQUINE SULFATE) (HYDROXYCHLOROQUINE SULFATE) [Concomitant]
  5. ASPIRIN (ACETYLSALICYLIC ACID) (ACETYLSALICYLIC ACID) [Concomitant]

REACTIONS (1)
  - Alopecia [None]
